FAERS Safety Report 6310291-8 (Version None)
Quarter: 2009Q3

REPORT INFORMATION
  Report Type: 
  Country: None (occurrence: None)
  Receive Date: 20090811
  Receipt Date: 20090728
  Transmission Date: 20100115
  Serious: Yes (Death)
  Sender: FDA-Public Use
  Company Number: KV200800166

PATIENT
  Age: 64 Year
  Sex: Male
  Weight: 74.8 kg

DRUGS (5)
  1. MORPHINE SULFATE [Suspect]
     Indication: PAIN
     Dosage: ORAL
     Route: 048
     Dates: start: 20070901, end: 20080428
  2. ADVAIR DISKUS 100/50 [Concomitant]
  3. UNSPECIFIED NEBULIZER TREATMENTS [Concomitant]
  4. OXYGEN (OXYGEN) [Concomitant]
  5. PRILOSEC /00661201/ (OMEPRAZOLE) [Concomitant]

REACTIONS (6)
  - AMNESIA [None]
  - DECREASED APPETITE [None]
  - HEADACHE [None]
  - LUNG NEOPLASM MALIGNANT [None]
  - MALIGNANT NEOPLASM PROGRESSION [None]
  - PRODUCT QUALITY ISSUE [None]
